FAERS Safety Report 4382647-4 (Version None)
Quarter: 2004Q2

REPORT INFORMATION
  Report Type: 
  Country: None (occurrence: None)
  Receive Date: 20040622
  Receipt Date: 20040531
  Transmission Date: 20050107
  Serious: Yes (Disabling)
  Sender: FDA-Public Use
  Company Number: PHHC-011

PATIENT
  Age: 68 Year
  Sex: Male

DRUGS (3)
  1. HYCAMTIN [Suspect]
     Dosage: 2.226MG PER DAY
     Route: 042
     Dates: start: 20040510, end: 20040514
  2. CISPLATIN [Suspect]
     Dosage: 95.4MG PER DAY
     Route: 042
     Dates: start: 20040514
  3. NARTOGRASTIM [Suspect]
     Route: 065
     Dates: start: 20040515

REACTIONS (4)
  - DIFFICULTY IN WALKING [None]
  - HYPERTONIA [None]
  - MUSCLE CRAMP [None]
  - NEUTROPHIL COUNT DECREASED [None]
